FAERS Safety Report 4802627-1 (Version None)
Quarter: 2005Q4

REPORT INFORMATION
  Report Type: 
  Country: None (occurrence: None)
  Receive Date: 20051014
  Receipt Date: 20050608
  Transmission Date: 20060501
  Serious: Yes (Hospitalization, Other)
  Sender: FDA-Public Use
  Company Number: 2005057357

PATIENT
  Age: 23 Year
  Sex: Female

DRUGS (3)
  1. NEURONTIN [Suspect]
     Indication: PAIN
     Dosage: 1000 MG (1 D), ORAL
     Route: 048
  2. FLEXERIL [Concomitant]
  3. DITROPAN [Concomitant]

REACTIONS (2)
  - CONVULSION [None]
  - RENAL FAILURE ACUTE [None]
